FAERS Safety Report 25100325 (Version 1)
Quarter: 2025Q1

REPORT INFORMATION
  Report Type: Spontaneous
  Country: US (occurrence: None)
  Receive Date: 20250319
  Receipt Date: 20250319
  Transmission Date: 20250408
  Serious: No
  Sender: FDA-CTU
  Company Number: None

PATIENT
  Age: 34 Year
  Sex: Female
  Weight: 78.75 kg

DRUGS (1)
  1. TIRZEPATIDE [Suspect]
     Active Substance: TIRZEPATIDE
     Indication: Weight decreased
     Route: 050
     Dates: start: 20250101, end: 20250212

REACTIONS (5)
  - Product compounding quality issue [None]
  - Product sterility issue [None]
  - Abdominal pain upper [None]
  - Diarrhoea [None]
  - Intermenstrual bleeding [None]

NARRATIVE: CASE EVENT DATE: 20250115
